FAERS Safety Report 7725983-3 (Version None)
Quarter: 2011Q3

REPORT INFORMATION
  Report Type: 
  Country: None (occurrence: None)
  Receive Date: 20110902
  Receipt Date: 20110818
  Transmission Date: 20111222
  Serious: Yes (Life-Threatening, Hospitalization)
  Sender: FDA-Public Use
  Company Number: JP-WATSON-2011-10302

PATIENT
  Age: 62 Year
  Sex: Male

DRUGS (6)
  1. OXYGEN [Suspect]
     Indication: MAINTENANCE OF ANAESTHESIA
     Dosage: 2 LXMIN (-1)
  2. FENTANYL CITRATE [Suspect]
     Indication: INDUCTION OF ANAESTHESIA
     Dosage: 0.75 MG, SINGLE
  3. NITROUS OXIDE [Suspect]
     Indication: MAINTENANCE OF ANAESTHESIA
     Dosage: 2  L X MIN(-1)
  4. PROPOFOL [Suspect]
     Indication: INDUCTION OF ANAESTHESIA
     Dosage: 70 MG, SINGLE
  5. ROCURONIUM (UNKNOWN) [Suspect]
     Indication: INDUCTION OF ANAESTHESIA
     Dosage: 40 MG, SINGLE
  6. SEVOFLURANE [Suspect]
     Indication: MAINTENANCE OF ANAESTHESIA
     Dosage: 0.8-2.0%

REACTIONS (3)
  - VENTRICULAR FIBRILLATION [None]
  - ELECTROCARDIOGRAM ST SEGMENT ELEVATION [None]
  - HYPOTENSION [None]
